FAERS Safety Report 17565809 (Version 1)
Quarter: 2020Q1

REPORT INFORMATION
  Report Type: Spontaneous
  Country: US (occurrence: US)
  Receive Date: 20200308
  Receipt Date: 20200308
  Transmission Date: 20200409
  Serious: Yes (Other)
  Sender: FDA-Public Use
  Company Number: None

PATIENT
  Age: 7 Year
  Sex: Male
  Weight: 33.75 kg

DRUGS (5)
  1. MONTELUKAST [Suspect]
     Active Substance: MONTELUKAST SODIUM
     Indication: ASTHMA
     Route: 048
     Dates: start: 20180923, end: 20200302
  2. ALBUTEROL. [Concomitant]
     Active Substance: ALBUTEROL
  3. FLONASE [Concomitant]
     Active Substance: FLUTICASONE PROPIONATE
  4. SINGULAIR [Concomitant]
     Active Substance: MONTELUKAST SODIUM
  5. MULTIVITAMINS [Concomitant]
     Active Substance: VITAMINS

REACTIONS (1)
  - Aggression [None]

NARRATIVE: CASE EVENT DATE: 20180913
